FAERS Safety Report 5122188-X (Version None)
Quarter: 2006Q4

REPORT INFORMATION
  Report Type: 
  Country: None (occurrence: None)
  Receive Date: 20061006
  Receipt Date: 20050128
  Transmission Date: 20070319
  Serious: Yes (Death)
  Sender: FDA-Public Use
  Company Number: IT-ABBOTT-05P-083-0288806-00

PATIENT
  Sex: Male

DRUGS (8)
  1. RITONAVIR SOFT GELATIN CAPSULES [Suspect]
     Indication: HIV INFECTION
     Route: 048
     Dates: start: 20030828, end: 20030907
  2. RITONAVIR SOFT GELATIN CAPSULES [Suspect]
     Route: 048
     Dates: start: 20030910, end: 20030916
  3. RITONAVIR SOFT GELATIN CAPSULES [Suspect]
     Route: 048
     Dates: start: 20030925, end: 20031007
  4. TIPRANAVIR [Concomitant]
     Indication: HIV INFECTION
     Route: 048
     Dates: start: 20030828, end: 20030907
  5. TIPRANAVIR [Concomitant]
     Route: 048
     Dates: start: 20030910, end: 20030916
  6. TIPRANAVIR [Concomitant]
     Route: 048
     Dates: start: 20030925, end: 20031007
  7. DIDANOSINE [Concomitant]
     Indication: RETROVIRAL INFECTION
  8. TENOFOVIR [Concomitant]
     Indication: RETROVIRAL INFECTION

REACTIONS (1)
  - DEATH [None]
